FAERS Safety Report 26061713 (Version 1)
Quarter: 2025Q4

REPORT INFORMATION
  Report Type: Spontaneous
  Country: CA (occurrence: CA)
  Receive Date: 20251118
  Receipt Date: 20251118
  Transmission Date: 20260118
  Serious: Yes (Death, Other)
  Sender: BRISTOL-MYERS SQUIBB COMPANY
  Company Number: CA-BRISTOL-MYERS SQUIBB COMPANY-2025-156079

PATIENT
  Age: 40 Year
  Sex: Female

DRUGS (273)
  1. ORENCIA [Suspect]
     Active Substance: ABATACEPT
     Indication: Rheumatoid arthritis
  2. ORENCIA [Suspect]
     Active Substance: ABATACEPT
  3. ORENCIA [Suspect]
     Active Substance: ABATACEPT
  4. ORENCIA [Suspect]
     Active Substance: ABATACEPT
  5. ACETAMINOPHEN [Concomitant]
     Active Substance: ACETAMINOPHEN
     Indication: Product used for unknown indication
  6. ACETAMINOPHEN AND CODEINE [Concomitant]
     Active Substance: ACETAMINOPHEN\CODEINE PHOSPHATE
     Indication: Product used for unknown indication
  7. ACTEMRA [Concomitant]
     Active Substance: TOCILIZUMAB
     Indication: Product used for unknown indication
  8. ALENDRONIC ACID [Concomitant]
     Active Substance: ALENDRONIC ACID
     Indication: Product used for unknown indication
  9. ALENDRONIC ACID [Concomitant]
     Active Substance: ALENDRONIC ACID
  10. ALENDRONIC ACID [Concomitant]
     Active Substance: ALENDRONIC ACID
  11. ALENDRONIC ACID [Concomitant]
     Active Substance: ALENDRONIC ACID
  12. ALENDRONIC ACID [Concomitant]
     Active Substance: ALENDRONIC ACID
  13. LEFLUNOMIDE [Concomitant]
     Active Substance: LEFLUNOMIDE
     Indication: Product used for unknown indication
  14. LEFLUNOMIDE [Concomitant]
     Active Substance: LEFLUNOMIDE
  15. PREDNISONE [Concomitant]
     Active Substance: PREDNISONE
     Indication: Product used for unknown indication
  16. ARAVA [Concomitant]
     Active Substance: LEFLUNOMIDE
     Indication: Product used for unknown indication
  17. ATOMOXETINE HYDROCHLORIDE [Concomitant]
     Active Substance: ATOMOXETINE HYDROCHLORIDE
     Indication: Product used for unknown indication
  18. ATOMOXETINE HYDROCHLORIDE [Concomitant]
     Active Substance: ATOMOXETINE HYDROCHLORIDE
  19. AZATHIOPRINE [Concomitant]
     Active Substance: AZATHIOPRINE
     Indication: Product used for unknown indication
  20. AZATHIOPRINE [Concomitant]
     Active Substance: AZATHIOPRINE
  21. BERINERT [Concomitant]
     Active Substance: HUMAN C1-ESTERASE INHIBITOR
     Indication: Product used for unknown indication
  22. BOTULINUM TOXIN TYPE A [Concomitant]
     Active Substance: BOTULINUM TOXIN TYPE A
     Indication: Product used for unknown indication
     Dosage: POWDER FOR SOLUTION
  23. BUTRANS [Concomitant]
     Active Substance: BUPRENORPHINE
     Indication: Product used for unknown indication
  24. CALCIUM ASCORBATE [Concomitant]
     Active Substance: CALCIUM ASCORBATE
     Indication: Product used for unknown indication
  25. CALCIUM CARBONATE [Concomitant]
     Active Substance: CALCIUM CARBONATE
     Indication: Product used for unknown indication
  26. CALCIUM CITRATE [Concomitant]
     Active Substance: CALCIUM CITRATE
     Indication: Product used for unknown indication
  27. CALCIUM GLUBIONATE [Concomitant]
     Active Substance: CALCIUM GLUBIONATE
     Indication: Product used for unknown indication
  28. CANDESARTAN [Concomitant]
     Active Substance: CANDESARTAN
     Indication: Migraine
  29. CELECOXIB [Concomitant]
     Active Substance: CELECOXIB
     Indication: Product used for unknown indication
  30. CETIRIZINE HYDROCHLORIDE [Concomitant]
     Active Substance: CETIRIZINE HYDROCHLORIDE
     Indication: Rheumatoid arthritis
  31. CETIRIZINE HYDROCHLORIDE [Concomitant]
     Active Substance: CETIRIZINE HYDROCHLORIDE
  32. CETIRIZINE HYDROCHLORIDE [Concomitant]
     Active Substance: CETIRIZINE HYDROCHLORIDE
  33. CETIRIZINE HYDROCHLORIDE [Concomitant]
     Active Substance: CETIRIZINE HYDROCHLORIDE
  34. CHLORHEXIDINE GLUCONATE [Concomitant]
     Active Substance: CHLORHEXIDINE GLUCONATE
     Indication: Product used for unknown indication
  35. CHLORHEXIDINE GLUCONATE\ISOPROPYL ALCOHOL [Concomitant]
     Active Substance: CHLORHEXIDINE GLUCONATE\ISOPROPYL ALCOHOL
     Indication: Product used for unknown indication
  36. CIMZIA [Concomitant]
     Active Substance: CERTOLIZUMAB PEGOL
     Indication: Product used for unknown indication
  37. CORTISONE ACETATE [Concomitant]
     Active Substance: CORTISONE ACETATE
     Indication: Product used for unknown indication
  38. COSENTYX [Concomitant]
     Active Substance: SECUKINUMAB
     Indication: Psoriatic arthropathy
  39. COSENTYX [Concomitant]
     Active Substance: SECUKINUMAB
  40. COSENTYX [Concomitant]
     Active Substance: SECUKINUMAB
  41. COSENTYX [Concomitant]
     Active Substance: SECUKINUMAB
  42. COSENTYX [Concomitant]
     Active Substance: SECUKINUMAB
  43. DICLOFENAC [Concomitant]
     Active Substance: DICLOFENAC
     Indication: Product used for unknown indication
  44. DICLOFENAC POTASSIUM [Concomitant]
     Active Substance: DICLOFENAC POTASSIUM
     Indication: Product used for unknown indication
  45. DICLOFENAC POTASSIUM [Concomitant]
     Active Substance: DICLOFENAC POTASSIUM
  46. DICLOFENAC SODIUM [Concomitant]
     Active Substance: DICLOFENAC SODIUM
     Indication: Product used for unknown indication
  47. DOMPERIDONE MALEATE [Concomitant]
     Active Substance: DOMPERIDONE MALEATE
     Indication: Product used for unknown indication
  48. ENBREL [Concomitant]
     Active Substance: ETANERCEPT
     Indication: Product used for unknown indication
  49. ERELZI [Concomitant]
     Active Substance: ETANERCEPT-SZZS
     Indication: Rheumatoid arthritis
  50. ERELZI [Concomitant]
     Active Substance: ETANERCEPT-SZZS
  51. ERELZI [Concomitant]
     Active Substance: ETANERCEPT-SZZS
  52. ERELZI [Concomitant]
     Active Substance: ETANERCEPT-SZZS
  53. ERELZI [Concomitant]
     Active Substance: ETANERCEPT-SZZS
  54. ERELZI [Concomitant]
     Active Substance: ETANERCEPT-SZZS
  55. ERELZI [Concomitant]
     Active Substance: ETANERCEPT-SZZS
  56. ERENUMAB-AOOE [Concomitant]
     Active Substance: ERENUMAB-AOOE
     Indication: Migraine
  57. ERGOCALCIFEROL [Concomitant]
     Active Substance: ERGOCALCIFEROL
     Indication: Product used for unknown indication
  58. FLUMETHASONE [Concomitant]
     Active Substance: FLUMETHASONE
     Indication: Product used for unknown indication
  59. FLUMETHASONE PIVALATE [Concomitant]
     Active Substance: FLUMETHASONE PIVALATE
     Indication: Product used for unknown indication
  60. FLUMETHASONE PIVALATE [Concomitant]
     Active Substance: FLUMETHASONE PIVALATE
  61. FOLIC ACID [Concomitant]
     Active Substance: FOLIC ACID
     Indication: Product used for unknown indication
  62. FOSAMAX [Concomitant]
     Active Substance: ALENDRONATE SODIUM
     Indication: Product used for unknown indication
  63. GOLD [Concomitant]
     Active Substance: GOLD
     Indication: Product used for unknown indication
  64. HAIR KERATIN AMINO ACIDS GOLD COMPLEX [Concomitant]
     Active Substance: HAIR KERATIN AMINO ACIDS GOLD COMPLEX
     Indication: Product used for unknown indication
  65. GOLD SODIUM THIOMALATE [Concomitant]
     Active Substance: GOLD SODIUM THIOMALATE
     Indication: Product used for unknown indication
  66. HYDROCORTISONE BUTYRATE [Concomitant]
     Active Substance: HYDROCORTISONE BUTYRATE
     Indication: Product used for unknown indication
  67. HYDROCORTISONE PROBUTATE [Concomitant]
     Active Substance: HYDROCORTISONE PROBUTATE
     Indication: Product used for unknown indication
  68. HYDROXYCHLOROQUINE [Concomitant]
     Active Substance: HYDROXYCHLOROQUINE
     Indication: Product used for unknown indication
  69. HYDROXYCHLOROQUINE SULFATE [Concomitant]
     Active Substance: HYDROXYCHLOROQUINE SULFATE
     Indication: Rheumatoid arthritis
  70. HYDROXYCHLOROQUINE SULFATE [Concomitant]
     Active Substance: HYDROXYCHLOROQUINE SULFATE
  71. HYDROXYCHLOROQUINE SULFATE [Concomitant]
     Active Substance: HYDROXYCHLOROQUINE SULFATE
  72. HYDROXYCHLOROQUINE SULFATE [Concomitant]
     Active Substance: HYDROXYCHLOROQUINE SULFATE
  73. HYDROXYCHLOROQUINE SULFATE [Concomitant]
     Active Substance: HYDROXYCHLOROQUINE SULFATE
  74. HYDROXYCHLOROQUINE SULFATE [Concomitant]
     Active Substance: HYDROXYCHLOROQUINE SULFATE
  75. HYRIMOZ [Concomitant]
     Active Substance: ADALIMUMAB-ADAZ
     Indication: Rheumatoid arthritis
  76. HYRIMOZ [Concomitant]
     Active Substance: ADALIMUMAB-ADAZ
  77. HYRIMOZ [Concomitant]
     Active Substance: ADALIMUMAB-ADAZ
  78. HYRIMOZ [Concomitant]
     Active Substance: ADALIMUMAB-ADAZ
  79. HYRIMOZ [Concomitant]
     Active Substance: ADALIMUMAB-ADAZ
  80. HYRIMOZ [Concomitant]
     Active Substance: ADALIMUMAB-ADAZ
  81. HYRIMOZ [Concomitant]
     Active Substance: ADALIMUMAB-ADAZ
     Route: 058
  82. HYRIMOZ [Concomitant]
     Active Substance: ADALIMUMAB-ADAZ
  83. INFLIXIMAB [Concomitant]
     Active Substance: INFLIXIMAB
     Indication: Rheumatoid arthritis
  84. INFLIXIMAB [Concomitant]
     Active Substance: INFLIXIMAB
  85. INFLIXIMAB [Concomitant]
     Active Substance: INFLIXIMAB
  86. INFLIXIMAB [Concomitant]
     Active Substance: INFLIXIMAB
  87. INFLIXIMAB [Concomitant]
     Active Substance: INFLIXIMAB
  88. INFLIXIMAB [Concomitant]
     Active Substance: INFLIXIMAB
  89. INFLIXIMAB [Concomitant]
     Active Substance: INFLIXIMAB
  90. INFLIXIMAB [Concomitant]
     Active Substance: INFLIXIMAB
  91. INFLIXIMAB [Concomitant]
     Active Substance: INFLIXIMAB
  92. ISOPROPYL ALCOHOL [Concomitant]
     Active Substance: ISOPROPYL ALCOHOL
     Indication: Product used for unknown indication
     Dosage: LIQUID TOPICAL
  93. KEVZARA [Concomitant]
     Active Substance: SARILUMAB
     Indication: Product used for unknown indication
  94. LAMICTAL [Concomitant]
     Active Substance: LAMOTRIGINE
     Indication: Product used for unknown indication
  95. MAGNESIUM [Concomitant]
     Active Substance: MAGNESIUM
     Indication: Product used for unknown indication
  96. MAGNESIUM [Concomitant]
     Active Substance: MAGNESIUM
  97. MAGNESIUM [Concomitant]
     Active Substance: MAGNESIUM
  98. MAGNESIUM [Concomitant]
     Active Substance: MAGNESIUM
  99. MAGNESIUM [Concomitant]
     Active Substance: MAGNESIUM
  100. METFORMIN [Concomitant]
     Active Substance: METFORMIN HYDROCHLORIDE
     Indication: Product used for unknown indication
  101. METHOTREXATE SODIUM [Concomitant]
     Active Substance: METHOTREXATE SODIUM
     Indication: Rheumatoid arthritis
  102. METHOTREXATE SODIUM [Concomitant]
     Active Substance: METHOTREXATE SODIUM
  103. METHOTREXATE SODIUM [Concomitant]
     Active Substance: METHOTREXATE SODIUM
  104. METHOTREXATE SODIUM [Concomitant]
     Active Substance: METHOTREXATE SODIUM
  105. METHOTREXATE SODIUM [Concomitant]
     Active Substance: METHOTREXATE SODIUM
  106. METHOTREXATE SODIUM [Concomitant]
     Active Substance: METHOTREXATE SODIUM
  107. METHOTREXATE SODIUM [Concomitant]
     Active Substance: METHOTREXATE SODIUM
  108. METHOTREXATE SODIUM [Concomitant]
     Active Substance: METHOTREXATE SODIUM
  109. METHOTREXATE SODIUM [Concomitant]
     Active Substance: METHOTREXATE SODIUM
  110. METHOTREXATE SODIUM [Concomitant]
     Active Substance: METHOTREXATE SODIUM
  111. METHYLPREDNISOLONE ACETATE [Concomitant]
     Active Substance: METHYLPREDNISOLONE ACETATE
     Indication: Rheumatoid arthritis
  112. METHYLPREDNISOLONE ACETATE [Concomitant]
     Active Substance: METHYLPREDNISOLONE ACETATE
  113. METHYLPREDNISOLONE ACETATE [Concomitant]
     Active Substance: METHYLPREDNISOLONE ACETATE
  114. METHYLPREDNISOLONE SODIUM SUCCINATE [Concomitant]
     Active Substance: METHYLPREDNISOLONE SODIUM SUCCINATE
     Indication: Product used for unknown indication
  115. METHYLPREDNISOLONE SODIUM SUCCINATE [Concomitant]
     Active Substance: METHYLPREDNISOLONE SODIUM SUCCINATE
  116. MINOCYCLINE HYDROCHLORIDE [Concomitant]
     Active Substance: MINOCYCLINE HYDROCHLORIDE
     Indication: Product used for unknown indication
  117. MINOCYCLINE HYDROCHLORIDE [Concomitant]
     Active Substance: MINOCYCLINE HYDROCHLORIDE
  118. MYOCHRYSINE [Concomitant]
     Active Substance: GOLD SODIUM THIOMALATE
     Indication: Rheumatoid arthritis
     Route: 030
  119. MYOCHRYSINE [Concomitant]
     Active Substance: GOLD SODIUM THIOMALATE
  120. MYOCHRYSINE [Concomitant]
     Active Substance: GOLD SODIUM THIOMALATE
  121. MYOCHRYSINE [Concomitant]
     Active Substance: GOLD SODIUM THIOMALATE
  122. MYOCHRYSINE [Concomitant]
     Active Substance: GOLD SODIUM THIOMALATE
  123. MYOCHRYSINE [Concomitant]
     Active Substance: GOLD SODIUM THIOMALATE
  124. MYOCHRYSINE [Concomitant]
     Active Substance: GOLD SODIUM THIOMALATE
  125. MYOCHRYSINE [Concomitant]
     Active Substance: GOLD SODIUM THIOMALATE
  126. MYOCHRYSINE [Concomitant]
     Active Substance: GOLD SODIUM THIOMALATE
  127. MYOCHRYSINE [Concomitant]
     Active Substance: GOLD SODIUM THIOMALATE
  128. MYOCHRYSINE [Concomitant]
     Active Substance: GOLD SODIUM THIOMALATE
  129. MYOCHRYSINE [Concomitant]
     Active Substance: GOLD SODIUM THIOMALATE
  130. MYOCHRYSINE [Concomitant]
     Active Substance: GOLD SODIUM THIOMALATE
  131. MYOCHRYSINE [Concomitant]
     Active Substance: GOLD SODIUM THIOMALATE
  132. MYOCHRYSINE [Concomitant]
     Active Substance: GOLD SODIUM THIOMALATE
  133. MYOCHRYSINE [Concomitant]
     Active Substance: GOLD SODIUM THIOMALATE
  134. MYOCHRYSINE [Concomitant]
     Active Substance: GOLD SODIUM THIOMALATE
  135. MYOCHRYSINE [Concomitant]
     Active Substance: GOLD SODIUM THIOMALATE
  136. MYRBETRIQ [Concomitant]
     Active Substance: MIRABEGRON
     Indication: Rheumatoid arthritis
     Dosage: TABLET (EXTENDED-RELEASE)
  137. NAPROXEN [Concomitant]
     Active Substance: NAPROXEN
     Indication: Product used for unknown indication
  138. NAPROXEN [Concomitant]
     Active Substance: NAPROXEN
  139. NAPROXEN [Concomitant]
     Active Substance: NAPROXEN
  140. NAPROXEN [Concomitant]
     Active Substance: NAPROXEN
  141. NAPROXEN [Concomitant]
     Active Substance: NAPROXEN
  142. NAPROXEN SODIUM [Concomitant]
     Active Substance: NAPROXEN SODIUM
     Indication: Product used for unknown indication
  143. NUCALA [Concomitant]
     Active Substance: MEPOLIZUMAB
     Indication: Product used for unknown indication
  144. NUCALA [Concomitant]
     Active Substance: MEPOLIZUMAB
  145. NUCALA [Concomitant]
     Active Substance: MEPOLIZUMAB
  146. NUCALA [Concomitant]
     Active Substance: MEPOLIZUMAB
  147. NUCALA [Concomitant]
     Active Substance: MEPOLIZUMAB
  148. NUCALA [Concomitant]
     Active Substance: MEPOLIZUMAB
  149. NUCALA [Concomitant]
     Active Substance: MEPOLIZUMAB
  150. NUCALA [Concomitant]
     Active Substance: MEPOLIZUMAB
  151. NUCALA [Concomitant]
     Active Substance: MEPOLIZUMAB
  152. NUCALA [Concomitant]
     Active Substance: MEPOLIZUMAB
  153. NUCALA [Concomitant]
     Active Substance: MEPOLIZUMAB
  154. NUCALA [Concomitant]
     Active Substance: MEPOLIZUMAB
  155. NUCALA [Concomitant]
     Active Substance: MEPOLIZUMAB
  156. NUCALA [Concomitant]
     Active Substance: MEPOLIZUMAB
  157. NUCALA [Concomitant]
     Active Substance: MEPOLIZUMAB
  158. NUCALA [Concomitant]
     Active Substance: MEPOLIZUMAB
  159. NUCALA [Concomitant]
     Active Substance: MEPOLIZUMAB
  160. NUCALA [Concomitant]
     Active Substance: MEPOLIZUMAB
  161. NUCALA [Concomitant]
     Active Substance: MEPOLIZUMAB
  162. NUCALA [Concomitant]
     Active Substance: MEPOLIZUMAB
  163. OTEZLA [Concomitant]
     Active Substance: APREMILAST
     Indication: Product used for unknown indication
  164. OXYCODONE [Concomitant]
     Active Substance: OXYCODONE
     Indication: Product used for unknown indication
  165. OXYCODONE [Concomitant]
     Active Substance: OXYCODONE
  166. PHTHALYLSULFATHIAZOLE [Concomitant]
     Active Substance: PHTHALYLSULFATHIAZOLE
     Indication: Rheumatoid arthritis
  167. PHTHALYLSULFATHIAZOLE [Concomitant]
     Active Substance: PHTHALYLSULFATHIAZOLE
  168. PREDNISONE [Concomitant]
     Active Substance: PREDNISONE
     Indication: Rheumatoid arthritis
  169. PSEUDOEPHEDRINE HYDROCHLORIDE [Concomitant]
     Active Substance: PSEUDOEPHEDRINE HYDROCHLORIDE
     Indication: Rheumatoid arthritis
  170. PSEUDOEPHEDRINE HYDROCHLORIDE [Concomitant]
     Active Substance: PSEUDOEPHEDRINE HYDROCHLORIDE
  171. PSEUDOEPHEDRINE HYDROCHLORIDE [Concomitant]
     Active Substance: PSEUDOEPHEDRINE HYDROCHLORIDE
  172. PSEUDOEPHEDRINE HYDROCHLORIDE [Concomitant]
     Active Substance: PSEUDOEPHEDRINE HYDROCHLORIDE
  173. PSEUDOEPHEDRINE HYDROCHLORIDE [Concomitant]
     Active Substance: PSEUDOEPHEDRINE HYDROCHLORIDE
  174. PSEUDOEPHEDRINE HYDROCHLORIDE [Concomitant]
     Active Substance: PSEUDOEPHEDRINE HYDROCHLORIDE
  175. PSEUDOEPHEDRINE HYDROCHLORIDE [Concomitant]
     Active Substance: PSEUDOEPHEDRINE HYDROCHLORIDE
  176. PSEUDOEPHEDRINE HYDROCHLORIDE [Concomitant]
     Active Substance: PSEUDOEPHEDRINE HYDROCHLORIDE
  177. PSEUDOEPHEDRINE HYDROCHLORIDE [Concomitant]
     Active Substance: PSEUDOEPHEDRINE HYDROCHLORIDE
  178. PSEUDOEPHEDRINE HYDROCHLORIDE [Concomitant]
     Active Substance: PSEUDOEPHEDRINE HYDROCHLORIDE
  179. PSEUDOEPHEDRINE HYDROCHLORIDE [Concomitant]
     Active Substance: PSEUDOEPHEDRINE HYDROCHLORIDE
  180. RAMIPRIL [Concomitant]
     Active Substance: RAMIPRIL
     Indication: Off label use
  181. RANITIDINE HYDROCHLORIDE [Concomitant]
     Active Substance: RANITIDINE HYDROCHLORIDE
     Indication: Product used for unknown indication
  182. RANITIDINE HYDROCHLORIDE [Concomitant]
     Active Substance: RANITIDINE HYDROCHLORIDE
  183. RANITIDINE HYDROCHLORIDE [Concomitant]
     Active Substance: RANITIDINE HYDROCHLORIDE
  184. RANITIDINE HYDROCHLORIDE [Concomitant]
     Active Substance: RANITIDINE HYDROCHLORIDE
  185. RANITIDINE HYDROCHLORIDE [Concomitant]
     Active Substance: RANITIDINE HYDROCHLORIDE
  186. REMICADE [Concomitant]
     Active Substance: INFLIXIMAB
     Indication: Product used for unknown indication
     Dosage: POWDER FOR SOLUTION INTRAVENOUS
     Route: 042
  187. RITUXIMAB [Concomitant]
     Active Substance: RITUXIMAB
     Indication: Rheumatoid arthritis
  188. RITUXIMAB [Concomitant]
     Active Substance: RITUXIMAB
  189. RITUXIMAB [Concomitant]
     Active Substance: RITUXIMAB
  190. RITUXIMAB [Concomitant]
     Active Substance: RITUXIMAB
  191. RITUXIMAB [Concomitant]
     Active Substance: RITUXIMAB
  192. RITUXIMAB [Concomitant]
     Active Substance: RITUXIMAB
  193. RITUXIMAB [Concomitant]
     Active Substance: RITUXIMAB
  194. RITUXIMAB [Concomitant]
     Active Substance: RITUXIMAB
  195. RITUXIMAB [Concomitant]
     Active Substance: RITUXIMAB
  196. RITUXIMAB [Concomitant]
     Active Substance: RITUXIMAB
  197. RITUXIMAB [Concomitant]
     Active Substance: RITUXIMAB
  198. RITUXIMAB [Concomitant]
     Active Substance: RITUXIMAB
  199. RITUXIMAB [Concomitant]
     Active Substance: RITUXIMAB
  200. RITUXIMAB [Concomitant]
     Active Substance: RITUXIMAB
  201. RITUXIMAB [Concomitant]
     Active Substance: RITUXIMAB
  202. RITUXIMAB [Concomitant]
     Active Substance: RITUXIMAB
  203. RITUXIMAB [Concomitant]
     Active Substance: RITUXIMAB
  204. RITUXIMAB [Concomitant]
     Active Substance: RITUXIMAB
  205. RITUXIMAB [Concomitant]
     Active Substance: RITUXIMAB
  206. RITUXIMAB [Concomitant]
     Active Substance: RITUXIMAB
  207. RITUXIMAB [Concomitant]
     Active Substance: RITUXIMAB
  208. RITUXIMAB [Concomitant]
     Active Substance: RITUXIMAB
  209. RITUXIMAB [Concomitant]
     Active Substance: RITUXIMAB
  210. RITUXIMAB [Concomitant]
     Active Substance: RITUXIMAB
  211. RITUXIMAB [Concomitant]
     Active Substance: RITUXIMAB
  212. RITUXIMAB [Concomitant]
     Active Substance: RITUXIMAB
  213. RITUXIMAB [Concomitant]
     Active Substance: RITUXIMAB
  214. RITUXIMAB [Concomitant]
     Active Substance: RITUXIMAB
  215. RITUXIMAB [Concomitant]
     Active Substance: RITUXIMAB
  216. RITUXIMAB [Concomitant]
     Active Substance: RITUXIMAB
  217. RITUXIMAB [Concomitant]
     Active Substance: RITUXIMAB
  218. RITUXIMAB [Concomitant]
     Active Substance: RITUXIMAB
  219. RITUXIMAB [Concomitant]
     Active Substance: RITUXIMAB
  220. RITUXIMAB [Concomitant]
     Active Substance: RITUXIMAB
  221. SULFASALAZINE [Concomitant]
     Active Substance: SULFASALAZINE
     Indication: Rheumatoid arthritis
  222. SULFASALAZINE [Concomitant]
     Active Substance: SULFASALAZINE
  223. SULFASALAZINE [Concomitant]
     Active Substance: SULFASALAZINE
  224. SULFASALAZINE [Concomitant]
     Active Substance: SULFASALAZINE
  225. SULFASALAZINE [Concomitant]
     Active Substance: SULFASALAZINE
  226. SULFASALAZINE [Concomitant]
     Active Substance: SULFASALAZINE
  227. DICLOFENAC SODIUM [Concomitant]
     Active Substance: DICLOFENAC SODIUM
     Indication: Product used for unknown indication
  228. HYDROCORTISONE [Concomitant]
     Active Substance: HYDROCORTISONE
     Indication: Product used for unknown indication
  229. LEFLUNOMIDE [Concomitant]
     Active Substance: LEFLUNOMIDE
     Indication: Rheumatoid arthritis
  230. LEFLUNOMIDE [Concomitant]
     Active Substance: LEFLUNOMIDE
  231. LEFLUNOMIDE [Concomitant]
     Active Substance: LEFLUNOMIDE
  232. LEFLUNOMIDE [Concomitant]
     Active Substance: LEFLUNOMIDE
  233. LEFLUNOMIDE [Concomitant]
     Active Substance: LEFLUNOMIDE
  234. LEFLUNOMIDE [Concomitant]
     Active Substance: LEFLUNOMIDE
  235. LEFLUNOMIDE [Concomitant]
     Active Substance: LEFLUNOMIDE
  236. TOPIRAMATE [Concomitant]
     Active Substance: TOPIRAMATE
     Indication: Product used for unknown indication
  237. TOPIRAMATE [Concomitant]
     Active Substance: TOPIRAMATE
  238. SIMPONI [Concomitant]
     Active Substance: GOLIMUMAB
     Indication: Rheumatoid arthritis
     Dosage: SOLUTION SUBCUTANEOUS
     Route: 058
  239. SIRUKUMAB [Concomitant]
     Active Substance: SIRUKUMAB
     Indication: Rheumatoid arthritis
  240. SIRUKUMAB [Concomitant]
     Active Substance: SIRUKUMAB
     Indication: Prostatic specific antigen
  241. GOLD SODIUM THIOMALATE [Concomitant]
     Active Substance: GOLD SODIUM THIOMALATE
     Indication: Product used for unknown indication
  242. SULFAMETHOXAZOLE\TRIMETHOPRIM [Concomitant]
     Active Substance: SULFAMETHOXAZOLE\TRIMETHOPRIM
     Indication: Product used for unknown indication
  243. SULFASALAZINE [Concomitant]
     Active Substance: SULFASALAZINE
     Indication: Product used for unknown indication
  244. TOFACITINIB [Concomitant]
     Active Substance: TOFACITINIB
     Indication: Product used for unknown indication
  245. TRAMADOL HYDROCHLORIDE [Concomitant]
     Active Substance: TRAMADOL HYDROCHLORIDE
     Indication: Rheumatoid arthritis
  246. TRAMADOL HYDROCHLORIDE [Concomitant]
     Active Substance: TRAMADOL HYDROCHLORIDE
  247. TRIAMCINOLONE [Concomitant]
     Active Substance: TRIAMCINOLONE
     Indication: Product used for unknown indication
  248. TRIAMCINOLONE [Concomitant]
     Active Substance: TRIAMCINOLONE
  249. TRIAMCINOLONE [Concomitant]
     Active Substance: TRIAMCINOLONE
  250. TRIAMCINOLONE [Concomitant]
     Active Substance: TRIAMCINOLONE
  251. TRIAMCINOLONE [Concomitant]
     Active Substance: TRIAMCINOLONE
  252. TUMS [Concomitant]
     Active Substance: CALCIUM CARBONATE
     Indication: Product used for unknown indication
  253. VITAMIN C [Concomitant]
     Active Substance: ASCORBIC ACID
     Indication: Product used for unknown indication
  254. XELJANZ [Concomitant]
     Active Substance: TOFACITINIB CITRATE
     Indication: Product used for unknown indication
  255. XELJANZ [Concomitant]
     Active Substance: TOFACITINIB CITRATE
  256. XELJANZ [Concomitant]
     Active Substance: TOFACITINIB CITRATE
  257. XELJANZ [Concomitant]
     Active Substance: TOFACITINIB CITRATE
  258. XELJANZ [Concomitant]
     Active Substance: TOFACITINIB CITRATE
  259. XELJANZ [Concomitant]
     Active Substance: TOFACITINIB CITRATE
  260. XELJANZ [Concomitant]
     Active Substance: TOFACITINIB CITRATE
  261. XELJANZ [Concomitant]
     Active Substance: TOFACITINIB CITRATE
  262. XELJANZ [Concomitant]
     Active Substance: TOFACITINIB CITRATE
  263. XELJANZ [Concomitant]
     Active Substance: TOFACITINIB CITRATE
  264. XELJANZ [Concomitant]
     Active Substance: TOFACITINIB CITRATE
  265. XELJANZ [Concomitant]
     Active Substance: TOFACITINIB CITRATE
  266. XELJANZ [Concomitant]
     Active Substance: TOFACITINIB CITRATE
  267. XELJANZ [Concomitant]
     Active Substance: TOFACITINIB CITRATE
  268. XELJANZ [Concomitant]
     Active Substance: TOFACITINIB CITRATE
  269. XELJANZ [Concomitant]
     Active Substance: TOFACITINIB CITRATE
  270. XELJANZ [Concomitant]
     Active Substance: TOFACITINIB CITRATE
  271. XELJANZ [Concomitant]
     Active Substance: TOFACITINIB CITRATE
  272. XELJANZ [Concomitant]
     Active Substance: TOFACITINIB CITRATE
  273. XELJANZ [Concomitant]
     Active Substance: TOFACITINIB CITRATE

REACTIONS (1)
  - Death [Fatal]
